FAERS Safety Report 25987600 (Version 1)
Quarter: 2025Q4

REPORT INFORMATION
  Report Type: Spontaneous
  Country: EU (occurrence: EU)
  Receive Date: 20251103
  Receipt Date: 20251103
  Transmission Date: 20260117
  Serious: Yes (Other)
  Sender: ASTELLAS
  Company Number: EU-ASTELLAS-2025-AER-059660

PATIENT
  Age: 67 Year
  Sex: Male

DRUGS (4)
  1. GILTERITINIB [Suspect]
     Active Substance: GILTERITINIB
     Indication: Acute myeloid leukaemia
     Route: 065
  2. GILTERITINIB [Suspect]
     Active Substance: GILTERITINIB
     Dosage: REDUCED DOSE
     Route: 065
  3. VENETOCLAX [Concomitant]
     Active Substance: VENETOCLAX
     Indication: Acute myeloid leukaemia
     Dosage: 4 CYCLES
     Route: 065
  4. DECITABINE [Concomitant]
     Active Substance: DECITABINE
     Indication: Acute myeloid leukaemia
     Dosage: 4 CYCLES
     Route: 065

REACTIONS (5)
  - Leukaemia recurrent [Unknown]
  - Respiratory failure [Unknown]
  - Leukostasis syndrome [Unknown]
  - Product use issue [Unknown]
  - Off label use [Unknown]

NARRATIVE: CASE EVENT DATE: 20240901
